FAERS Safety Report 5754404-5 (Version None)
Quarter: 2008Q2

REPORT INFORMATION
  Report Type: 
  Country: None (occurrence: None)
  Receive Date: 20080530
  Receipt Date: 20080521
  Transmission Date: 20081010
  Serious: Yes (Life-Threatening, Hospitalization)
  Sender: FDA-Public Use
  Company Number: US-ABBOTT-08P-163-0452740-00

PATIENT
  Sex: Female
  Weight: 47.67 kg

DRUGS (9)
  1. DEPAKENE [Suspect]
     Indication: CONVULSION PROPHYLAXIS
     Dosage: 250 MG 3X DAILY AND 500 MG 1 TAB DAILY CRUSHED VIA GASTRIC TUBE
     Dates: start: 19920101, end: 20070801
  2. LEVETIRACETAM [Concomitant]
     Indication: CONVULSION PROPHYLAXIS
     Dosage: GASTRIC TUBE
     Dates: start: 20030101
  3. GABAPENTIN [Concomitant]
     Indication: CONVULSION PROPHYLAXIS
     Dosage: 700 MG QAM/6PM; 600 MG AT NOON; 700 MG AT 6PM; 600 MG @NOON AND 10PM VIA G-TUBE
  4. PYRIDOXINE [Concomitant]
     Indication: ABNORMAL BEHAVIOUR
     Dosage: GASTRIC TUBE
     Dates: start: 20050101
  5. DOCUSATE SODIUM [Concomitant]
     Indication: CONSTIPATION PROPHYLAXIS
     Dosage: GASTRIC TUBE
     Dates: start: 20060101
  6. BENEPROTEIN [Concomitant]
     Indication: PROTEIN TOTAL
     Dosage: 1 SCOOP VIA GASTRIC TUBE
  7. BENEPROTEIN [Concomitant]
     Indication: SUPPLEMENTATION THERAPY
  8. SENNA ALEXANDRINA LIQUID EXTRACT [Concomitant]
     Indication: CONSTIPATION PROPHYLAXIS
     Dosage: GASTRIC TUBE
  9. PHENYTOIN [Concomitant]
     Indication: CONVULSION PROPHYLAXIS
     Route: 042
     Dates: start: 20070801, end: 20070801

REACTIONS (12)
  - ABDOMINAL DISTENSION [None]
  - ALOPECIA [None]
  - AMMONIA ABNORMAL [None]
  - BLOOD AMYLASE INCREASED [None]
  - CARDIAC ARREST [None]
  - LIVER FUNCTION TEST ABNORMAL [None]
  - LOCALISED INFECTION [None]
  - ORAL INTAKE REDUCED [None]
  - PANCREATITIS [None]
  - SALIVARY GLAND NEOPLASM [None]
  - THYROID FUNCTION TEST ABNORMAL [None]
  - WEIGHT INCREASED [None]
